FAERS Safety Report 13653242 (Version 1)
Quarter: 2017Q2

REPORT INFORMATION
  Report Type: Spontaneous
  Country: US (occurrence: US)
  Receive Date: 20170614
  Receipt Date: 20170614
  Transmission Date: 20170830
  Serious: Yes (Hospitalization)
  Sender: FDA-Public Use
  Company Number: US-ROCHE-1268025

PATIENT
  Sex: Female

DRUGS (5)
  1. LOVAZA [Concomitant]
     Active Substance: OMEGA-3-ACID ETHYL ESTERS
     Dosage: 4 CAPSULE
     Route: 065
  2. ASPIRIN. [Concomitant]
     Active Substance: ASPIRIN
     Route: 065
  3. XELODA [Suspect]
     Active Substance: CAPECITABINE
     Indication: BREAST CANCER
     Dosage: 14 DAYS ON, 7 DAYS OFF
     Route: 048
     Dates: end: 20130818
  4. METFORMIN [Concomitant]
     Active Substance: METFORMIN HYDROCHLORIDE
     Route: 065
  5. EXEMESTANE. [Concomitant]
     Active Substance: EXEMESTANE

REACTIONS (8)
  - Dehydration [Unknown]
  - Balance disorder [Unknown]
  - Neuropathy peripheral [Unknown]
  - Diarrhoea [Recovering/Resolving]
  - Pyrexia [Recovering/Resolving]
  - Vision blurred [Unknown]
  - Hypokalaemia [Unknown]
  - Dyspepsia [Unknown]
